FAERS Safety Report 18538578 (Version 1)
Quarter: 2020Q4

REPORT INFORMATION
  Report Type: Report from Study
  Country: None (occurrence: NL)
  Receive Date: 20201123
  Receipt Date: 20201123
  Transmission Date: 20210114
  Serious: Yes (Other)
  Sender: FDA-Public Use
  Company Number: NL-ABBVIE-20K-114-3658201-00

PATIENT
  Sex: Female

DRUGS (4)
  1. SINEMET [Concomitant]
     Active Substance: CARBIDOPA\LEVODOPA
     Indication: PARKINSON^S DISEASE
     Dosage: 100/25
  2. PARACETAMOL [Concomitant]
     Active Substance: ACETAMINOPHEN
     Indication: ABDOMINAL PAIN
  3. DUODOPA [Suspect]
     Active Substance: CARBIDOPA\LEVODOPA
     Indication: PARKINSON^S DISEASE
     Dosage: MD 13.5 ML CD 3.8 ML/H ED 0.5 ML, REMAINS AT 16 HOURS
     Route: 050
     Dates: start: 20190114
  4. DUODOPA [Suspect]
     Active Substance: CARBIDOPA\LEVODOPA
     Dosage: MD 13.2 ML CD 3.8 ML/H ED 0.5 ML, REMAINS AT 16 HOURS
     Route: 050

REACTIONS (2)
  - Syncope [Not Recovered/Not Resolved]
  - Transient ischaemic attack [Not Recovered/Not Resolved]

NARRATIVE: CASE EVENT DATE: 20201117
